FAERS Safety Report 6477457-8 (Version None)
Quarter: 2009Q4

REPORT INFORMATION
  Report Type: 
  Country: None (occurrence: None)
  Receive Date: 20091207
  Receipt Date: 20091203
  Transmission Date: 20100525
  Serious: Yes (Death, Hospitalization)
  Sender: FDA-Public Use
  Company Number: JP-SANOFI-AVENTIS-2009SA001445

PATIENT
  Age: 78 Year
  Sex: Male
  Weight: 69 kg

DRUGS (5)
  1. TAXOTERE [Suspect]
     Indication: PROSTATE CANCER
     Route: 041
     Dates: start: 20090818, end: 20091015
  2. KYTRIL [Concomitant]
     Route: 042
     Dates: start: 20090818, end: 20091015
  3. ZOMETA [Concomitant]
     Route: 042
     Dates: start: 20090818, end: 20091015
  4. DEXAMETHASONE TAB [Concomitant]
     Route: 048
     Dates: start: 20090818, end: 20091021
  5. MYSLEE [Concomitant]
     Indication: INSOMNIA
     Route: 048
     Dates: start: 20090824

REACTIONS (6)
  - CHEST DISCOMFORT [None]
  - GLOSSODYNIA [None]
  - INTERSTITIAL LUNG DISEASE [None]
  - ORAL CANDIDIASIS [None]
  - REFLUX OESOPHAGITIS [None]
  - WHITE BLOOD CELL COUNT DECREASED [None]
